FAERS Safety Report 7297498-0 (Version None)
Quarter: 2011Q1

REPORT INFORMATION
  Report Type: 
  Country: None (occurrence: None)
  Receive Date: 20110216
  Receipt Date: 20110211
  Transmission Date: 20110831
  Serious: Yes (Disabling, Other)
  Sender: FDA-Public Use
  Company Number: US-PFIZER INC-2006128454

PATIENT
  Sex: Female
  Weight: 77 kg

DRUGS (6)
  1. CHANTIX [Suspect]
     Indication: SMOKING CESSATION THERAPY
     Dosage: UNK
     Dates: start: 20060101
  2. CHANTIX [Suspect]
     Dosage: 0.5 MG, 1X/DAY
     Dates: start: 20090101
  3. WELCHOL [Concomitant]
  4. CHANTIX [Suspect]
     Dosage: UNK
     Dates: start: 20100601, end: 20100101
  5. ZOCOR [Concomitant]
     Indication: BLOOD CHOLESTEROL INCREASED
     Dosage: UNK
  6. PREVACID [Concomitant]
     Indication: GASTROOESOPHAGEAL REFLUX DISEASE

REACTIONS (6)
  - MEMORY IMPAIRMENT [None]
  - BLOOD CHOLESTEROL INCREASED [None]
  - FEELING JITTERY [None]
  - DRUG EFFECT DECREASED [None]
  - ANXIETY [None]
  - DECREASED ACTIVITY [None]
